FAERS Safety Report 16046026 (Version 1)
Quarter: 2019Q1

REPORT INFORMATION
  Report Type: Spontaneous
  Country: FR (occurrence: FR)
  Receive Date: 20190307
  Receipt Date: 20190307
  Transmission Date: 20190418
  Serious: Yes (Hospitalization)
  Sender: FDA-Public Use
  Company Number: FR-ACCORD-111483

PATIENT
  Age: 51 Year
  Sex: Male
  Weight: 82 kg

DRUGS (5)
  1. ESIDREX [Concomitant]
     Active Substance: HYDROCHLOROTHIAZIDE
  2. ARIPIPRAZOLE. [Suspect]
     Active Substance: ARIPIPRAZOLE
     Indication: MAJOR DEPRESSION
     Route: 048
     Dates: start: 201808, end: 20180827
  3. NAFTILUX [Concomitant]
     Active Substance: NAFRONYL OXALATE
  4. PAROXETINE. [Interacting]
     Active Substance: PAROXETINE
     Indication: MAJOR DEPRESSION
     Route: 048
     Dates: start: 2008, end: 20180830
  5. PRINCI B [Concomitant]

REACTIONS (4)
  - Hyperhidrosis [Recovered/Resolved]
  - Extrapyramidal disorder [Recovered/Resolved]
  - Tachycardia [Recovered/Resolved]
  - Drug interaction [Unknown]

NARRATIVE: CASE EVENT DATE: 20180827
